FAERS Safety Report 11251541 (Version 1)
Quarter: 2015Q3

REPORT INFORMATION
  Report Type: Spontaneous
  Country: US (occurrence: US)
  Receive Date: 20150708
  Receipt Date: 20150708
  Transmission Date: 20151125
  Serious: No
  Sender: FDA-Public Use
  Company Number: US-ELI_LILLY_AND_COMPANY-US201204005563

PATIENT
  Age: 80 Year
  Sex: Female

DRUGS (4)
  1. MORPHINE [Concomitant]
     Active Substance: MORPHINE
     Dosage: 15 MG, AS NEEDED
  2. GEMZAR [Suspect]
     Active Substance: GEMCITABINE HYDROCHLORIDE
     Indication: BREAST CANCER METASTATIC
     Dosage: UNK, EVERY WEEK FOR THREE WEEK AND OFF FOR ONE WEEK
  3. MORPHINE [Concomitant]
     Active Substance: MORPHINE
     Dosage: 30 MG, QD
  4. ZOMETA [Concomitant]
     Active Substance: ZOLEDRONIC ACID

REACTIONS (2)
  - Vision blurred [Unknown]
  - Bone pain [Unknown]
